FAERS Safety Report 9243334 (Version 2)
Quarter: 2013Q2

REPORT INFORMATION
  Report Type: Spontaneous
  Country: US (occurrence: US)
  Receive Date: 20130420
  Receipt Date: 20130420
  Transmission Date: 20140414
  Serious: Yes (Hospitalization)
  Sender: FDA-Public Use
  Company Number: US-B.I. PHARMACEUTICALS,INC./RIDGEFIELD-2013-BI-10224BP

PATIENT
  Age: 80 Year
  Sex: Female
  Weight: 49 kg

DRUGS (4)
  1. PRADAXA [Suspect]
     Indication: ATRIAL FIBRILLATION
     Dosage: 300 MG
     Route: 048
     Dates: start: 201202, end: 201301
  2. PRADAXA [Suspect]
     Dosage: 225 MG
     Route: 048
     Dates: start: 201301
  3. METOPROLOL [Concomitant]
     Indication: HYPERTENSION
     Dosage: 25 MG
     Route: 048
  4. ASPIRIN [Concomitant]
     Dosage: 81 MG
     Route: 048

REACTIONS (7)
  - Heart rate increased [Recovered/Resolved]
  - Pruritus [Recovered/Resolved]
  - Rash macular [Not Recovered/Not Resolved]
  - Pruritus [Not Recovered/Not Resolved]
  - Pruritus [Recovered/Resolved]
  - Rash macular [Recovered/Resolved]
  - Hearing impaired [Not Recovered/Not Resolved]
